FAERS Safety Report 5221729-1 (Version None)
Quarter: 2007Q1

REPORT INFORMATION
  Report Type: 
  Country: None (occurrence: None)
  Receive Date: 20070129
  Receipt Date: 20070117
  Transmission Date: 20070707
  Serious: Yes (Other)
  Sender: FDA-Public Use
  Company Number: PHBS2007HR01101

PATIENT
  Age: 55 Year
  Sex: Female
  Weight: 65 kg

DRUGS (1)
  1. LAMISIL [Suspect]
     Dosage: 250 MG/D
     Route: 048

REACTIONS (6)
  - CHOKING [None]
  - DYSPNOEA [None]
  - GENERALISED ERYTHEMA [None]
  - PRURITUS [None]
  - RASH ERYTHEMATOUS [None]
  - URTICARIA GENERALISED [None]
